FAERS Safety Report 6675728-3 (Version None)
Quarter: 2010Q2

REPORT INFORMATION
  Report Type: 
  Country: None (occurrence: None)
  Receive Date: 20100409
  Receipt Date: 20100402
  Transmission Date: 20101027
  Serious: Yes (Death, Hospitalization, Other)
  Sender: FDA-Public Use
  Company Number: US-AMGEN-QUU396074

PATIENT
  Sex: Male

DRUGS (6)
  1. NPLATE [Suspect]
     Indication: IDIOPATHIC THROMBOCYTOPENIC PURPURA
     Route: 058
     Dates: start: 20081021, end: 20091110
  2. AVASTIN [Concomitant]
     Dates: start: 20091103, end: 20091124
  3. ALIMTA [Concomitant]
     Dates: start: 20091103, end: 20091124
  4. FOLATE SODIUM [Concomitant]
  5. VITAMIN B-12 [Concomitant]
     Dates: start: 20091006
  6. DECADRON [Concomitant]

REACTIONS (4)
  - IDIOPATHIC THROMBOCYTOPENIC PURPURA [None]
  - LUNG ADENOCARCINOMA METASTATIC [None]
  - PERFORMANCE STATUS DECREASED [None]
  - PNEUMONIA [None]
